FAERS Safety Report 6854135-4 (Version None)
Quarter: 2010Q3

REPORT INFORMATION
  Report Type: 
  Country: None (occurrence: None)
  Receive Date: 20100717
  Receipt Date: 20080205
  Transmission Date: 20110219
  Serious: Yes (Other)
  Sender: FDA-Public Use
  Company Number: US-PFIZER INC-2007105624

PATIENT
  Sex: Female
  Weight: 85.3 kg

DRUGS (6)
  1. CHANTIX [Suspect]
     Indication: SMOKING CESSATION THERAPY
     Route: 048
     Dates: start: 20071202, end: 20071210
  2. ALBUTEROL [Concomitant]
  3. DIFLUCAN [Concomitant]
     Dates: start: 20071124, end: 20071130
  4. PRILOSEC [Concomitant]
  5. BACTRIM [Concomitant]
     Indication: ORAL CANDIDIASIS
     Dates: start: 20071124, end: 20071203
  6. AMBIEN [Concomitant]
     Indication: SLEEP DISORDER

REACTIONS (6)
  - DERMATITIS ALLERGIC [None]
  - FEELING ABNORMAL [None]
  - PRURITUS GENERALISED [None]
  - RASH MACULAR [None]
  - SKIN BURNING SENSATION [None]
  - WEIGHT DECREASED [None]
